FAERS Safety Report 8374460-8 (Version None)
Quarter: 2012Q2

REPORT INFORMATION
  Report Type: 
  Country: None (occurrence: None)
  Receive Date: 20120521
  Receipt Date: 20120509
  Transmission Date: 20120825
  Serious: No
  Sender: FDA-Public Use
  Company Number: US-ASTRAZENECA-2012SE27327

PATIENT
  Age: 77 Year
  Sex: Female
  Weight: 68 kg

DRUGS (7)
  1. NEXIUM [Suspect]
     Indication: OROPHARYNGEAL PAIN
     Route: 048
  2. CALCIUM [Concomitant]
  3. VICODIN [Concomitant]
  4. OTC VITAMIN D [Concomitant]
  5. PRILOSEC [Suspect]
     Route: 048
     Dates: start: 20120208
  6. PRILOSEC [Suspect]
     Indication: REFLUX LARYNGITIS
     Dosage: GENERIC, 40 MG DAILY
     Route: 048
  7. IBUPROFEN [Concomitant]

REACTIONS (8)
  - DYSPHONIA [None]
  - OFF LABEL USE [None]
  - EAR INFECTION [None]
  - ERUCTATION [None]
  - DYSPEPSIA [None]
  - PAIN IN EXTREMITY [None]
  - WHITE BLOOD CELL COUNT INCREASED [None]
  - ARTHRALGIA [None]
